FAERS Safety Report 15195988 (Version 1)
Quarter: 2018Q3

REPORT INFORMATION
  Report Type: Spontaneous
  Country: US (occurrence: US)
  Receive Date: 20180626
  Receipt Date: 20180626
  Transmission Date: 20181010
  Serious: No
  Sender: FDA-Public Use
  Company Number: None

PATIENT
  Age: 55 Year
  Sex: Male

DRUGS (1)
  1. VEMLIDY [Suspect]
     Active Substance: TENOFOVIR ALAFENAMIDE FUMARATE
     Dates: start: 20180606, end: 20180608

REACTIONS (3)
  - Abdominal pain upper [None]
  - Pharyngeal oedema [None]
  - Dyspnoea [None]

NARRATIVE: CASE EVENT DATE: 20180606
